FAERS Safety Report 24140819 (Version 7)
Quarter: 2025Q1

REPORT INFORMATION
  Report Type: Report from Study
  Country: BE (occurrence: BE)
  Receive Date: 20240726
  Receipt Date: 20250207
  Transmission Date: 20250409
  Serious: Yes (Hospitalization, Other)
  Sender: EXELIXIS
  Company Number: BE-IPSEN Group, Research and Development-2024-02075

PATIENT

DRUGS (36)
  1. CABOZANTINIB [Suspect]
     Active Substance: CABOZANTINIB
     Indication: Renal cell carcinoma
     Dosage: 40 MG, QD
     Route: 065
     Dates: start: 20231009, end: 20240326
  2. CABOZANTINIB [Suspect]
     Active Substance: CABOZANTINIB
     Dosage: 40 MG, QD
     Route: 065
     Dates: start: 20240401, end: 20240812
  3. CABOZANTINIB [Suspect]
     Active Substance: CABOZANTINIB
     Dosage: 40 MG, QD
     Route: 065
     Dates: start: 20240827, end: 20241110
  4. CABOZANTINIB [Suspect]
     Active Substance: CABOZANTINIB
     Dosage: 40 MG, QD
     Route: 065
     Dates: start: 20241120, end: 20241124
  5. CABOZANTINIB [Suspect]
     Active Substance: CABOZANTINIB
     Dosage: 40 MG, QD
     Route: 065
     Dates: start: 20241204
  6. NIVOLUMAB [Concomitant]
     Active Substance: NIVOLUMAB
     Dates: start: 20231009
  7. NIVOLUMAB [Concomitant]
     Active Substance: NIVOLUMAB
     Dates: start: 20231023
  8. NIVOLUMAB [Concomitant]
     Active Substance: NIVOLUMAB
     Dates: start: 20231106
  9. NIVOLUMAB [Concomitant]
     Active Substance: NIVOLUMAB
     Dates: start: 20231120
  10. NIVOLUMAB [Concomitant]
     Active Substance: NIVOLUMAB
     Dates: start: 20231204
  11. NIVOLUMAB [Concomitant]
     Active Substance: NIVOLUMAB
     Dates: start: 20231218
  12. NIVOLUMAB [Concomitant]
     Active Substance: NIVOLUMAB
     Dates: start: 20240108
  13. NIVOLUMAB [Concomitant]
     Active Substance: NIVOLUMAB
     Dates: start: 20240122
  14. NIVOLUMAB [Concomitant]
     Active Substance: NIVOLUMAB
     Dates: start: 20240205
  15. NIVOLUMAB [Concomitant]
     Active Substance: NIVOLUMAB
     Dates: start: 20240219
  16. NIVOLUMAB [Concomitant]
     Active Substance: NIVOLUMAB
     Dates: start: 20240304
  17. NIVOLUMAB [Concomitant]
     Active Substance: NIVOLUMAB
     Dates: start: 20240318
  18. NIVOLUMAB [Concomitant]
     Active Substance: NIVOLUMAB
     Dates: start: 20240408
  19. NIVOLUMAB [Concomitant]
     Active Substance: NIVOLUMAB
     Dates: start: 20240422
  20. NIVOLUMAB [Concomitant]
     Active Substance: NIVOLUMAB
     Dates: start: 20240506
  21. NIVOLUMAB [Concomitant]
     Active Substance: NIVOLUMAB
     Dates: start: 20240521
  22. NIVOLUMAB [Concomitant]
     Active Substance: NIVOLUMAB
     Dates: start: 20240603
  23. NIVOLUMAB [Concomitant]
     Active Substance: NIVOLUMAB
     Dates: start: 20240617
  24. NIVOLUMAB [Concomitant]
     Active Substance: NIVOLUMAB
     Dates: start: 20240701
  25. NIVOLUMAB [Concomitant]
     Active Substance: NIVOLUMAB
     Dates: start: 20240715
  26. NIVOLUMAB [Concomitant]
     Active Substance: NIVOLUMAB
     Dates: start: 20240729
  27. NIVOLUMAB [Concomitant]
     Active Substance: NIVOLUMAB
     Dates: start: 20240812
  28. NIVOLUMAB [Concomitant]
     Active Substance: NIVOLUMAB
     Dates: start: 20240826
  29. NIVOLUMAB [Concomitant]
     Active Substance: NIVOLUMAB
     Dates: start: 20240909
  30. NIVOLUMAB [Concomitant]
     Active Substance: NIVOLUMAB
     Dates: start: 20240923
  31. NIVOLUMAB [Concomitant]
     Active Substance: NIVOLUMAB
     Dates: start: 20241007
  32. NIVOLUMAB [Concomitant]
     Active Substance: NIVOLUMAB
     Dates: start: 20241104
  33. NIVOLUMAB [Concomitant]
     Active Substance: NIVOLUMAB
     Dates: start: 20241209
  34. NIVOLUMAB [Concomitant]
     Active Substance: NIVOLUMAB
     Dates: start: 20250106
  35. ACETAMINOPHEN [Concomitant]
     Active Substance: ACETAMINOPHEN
     Indication: Transfusion reaction
     Route: 048
     Dates: start: 20231120, end: 20231123
  36. DIPROPHOS [Concomitant]
     Active Substance: BETAMETHASONE DIPROPIONATE\BETAMETHASONE SODIUM PHOSPHATE
     Indication: Carpal tunnel decompression
     Dates: start: 20240126, end: 20240126

REACTIONS (13)
  - Hepatotoxicity [Recovered/Resolved]
  - Appendicitis [Recovered/Resolved]
  - Myalgia [Not Recovered/Not Resolved]
  - Regurgitation [Not Recovered/Not Resolved]
  - Taste disorder [Not Recovered/Not Resolved]
  - Hypotension [Recovered/Resolved]
  - Blood lactate dehydrogenase increased [Recovered/Resolved]
  - Blood lactate dehydrogenase increased [Unknown]
  - Rash [Recovered/Resolved]
  - Dysphonia [Not Recovered/Not Resolved]
  - Mucosal inflammation [Not Recovered/Not Resolved]
  - Diarrhoea [Not Recovered/Not Resolved]
  - Lipase increased [Not Recovered/Not Resolved]

NARRATIVE: CASE EVENT DATE: 20231023
